FAERS Safety Report 25762980 (Version 1)
Quarter: 2025Q3

REPORT INFORMATION
  Report Type: Spontaneous
  Country: JP (occurrence: JP)
  Receive Date: 20250904
  Receipt Date: 20250904
  Transmission Date: 20251021
  Serious: Yes (Death, Disabling)
  Sender: MERCK SHARP & DOHME LLC
  Company Number: JP-009507513-2325028

PATIENT
  Age: 86 Year
  Sex: Female
  Weight: 54.5 kg

DRUGS (9)
  1. KEYTRUDA [Suspect]
     Active Substance: PEMBROLIZUMAB
     Indication: Metastatic carcinoma of the bladder
     Route: 042
     Dates: start: 20241121, end: 20241121
  2. Miya Bifidobacterium (BM) tablet [Concomitant]
     Route: 048
  3. Xarelto OD 10 mg [Concomitant]
     Route: 048
  4. Pitavastatin ca OD tablet 1 mg [Concomitant]
     Route: 048
  5. Trazenta tablet 5 mg [Concomitant]
  6. LANSOPRAZOLE [Concomitant]
     Active Substance: LANSOPRAZOLE
     Route: 048
  7. Sennoside tablet 12 mg [Concomitant]
     Route: 048
  8. Cibenzoline succinate tablet 100 mg [Concomitant]
     Route: 048
  9. Vasolan tablet 40 mg [Concomitant]
     Route: 048

REACTIONS (1)
  - Skin disorder [Fatal]

NARRATIVE: CASE EVENT DATE: 20241205
